FAERS Safety Report 7093109-8 (Version None)
Quarter: 2010Q4

REPORT INFORMATION
  Report Type: 
  Country: None (occurrence: None)
  Receive Date: 20101110
  Receipt Date: 20101101
  Transmission Date: 20110411
  Serious: Yes (Hospitalization)
  Sender: FDA-Public Use
  Company Number: JP-ASTRAZENECA-2010SE50034

PATIENT
  Age: 28731 Day
  Sex: Female
  Weight: 63 kg

DRUGS (27)
  1. ARIMIDEX [Suspect]
     Indication: BREAST CANCER
     Route: 048
     Dates: start: 20081209, end: 20101013
  2. AROMASIN [Suspect]
     Indication: BREAST CANCER
     Route: 048
     Dates: start: 20050704, end: 20081207
  3. LOXONIN [Concomitant]
     Indication: METASTASES TO BONE
     Route: 048
     Dates: start: 20051109, end: 20101013
  4. LOXONIN [Concomitant]
     Indication: PAIN
     Route: 048
     Dates: start: 20051109, end: 20101013
  5. TENAXIL [Concomitant]
     Indication: HYPERTENSION
     Route: 048
     Dates: start: 20051012, end: 20081222
  6. TENAXIL [Concomitant]
  7. CANDESARTAN CILEXETIL AND HYDROCHLOROTHIAZIDE [Concomitant]
     Indication: HYPERTENSION
     Route: 048
     Dates: start: 20101012
  8. ALPRAZOLAM [Concomitant]
     Indication: AUTONOMIC NERVOUS SYSTEM IMBALANCE
     Route: 048
  9. SILECE [Concomitant]
     Indication: AUTONOMIC NERVOUS SYSTEM IMBALANCE
     Route: 048
  10. MOHRUS TAPE [Concomitant]
     Indication: ANALGESIC THERAPY
     Dosage: OPTIMAL DOSE
     Route: 062
  11. RHYTHMY [Concomitant]
     Indication: AUTONOMIC NERVOUS SYSTEM IMBALANCE
     Route: 048
     Dates: start: 20050713
  12. SELBEX [Concomitant]
     Indication: GASTRITIS PROPHYLAXIS
     Route: 048
     Dates: start: 20051026
  13. YODEL-S [Concomitant]
     Indication: CONSTIPATION
     Route: 048
     Dates: start: 20070427
  14. ATELEC [Concomitant]
     Indication: HYPERTENSION
     Route: 048
     Dates: start: 20090428
  15. NORVASC [Concomitant]
     Indication: HYPERTENSION
     Dates: start: 20050819
  16. DIOVAN [Concomitant]
     Indication: HYPERTENSION
     Dates: start: 20051216
  17. MAINTATE [Concomitant]
     Indication: HYPERTENSION
     Dates: start: 20051116
  18. NIFLAN [Concomitant]
     Indication: CATARACT
  19. LANDEL [Concomitant]
     Indication: HYPERTENSION
     Dates: start: 20060302
  20. CEROCRAL [Concomitant]
  21. POSTERISAN [Concomitant]
     Indication: HAEMORRHOIDS
  22. HEMOCURON [Concomitant]
     Indication: HAEMORRHOIDS
  23. MAGNESIUM OXIDE [Concomitant]
  24. RHUBARB [Concomitant]
  25. METFORMIN HYDROCHLORIDE [Concomitant]
  26. AREDIA [Concomitant]
  27. NELBIS [Concomitant]
     Indication: DIABETES MELLITUS

REACTIONS (1)
  - NEPHROGENIC ANAEMIA [None]
